FAERS Safety Report 25920765 (Version 1)
Quarter: 2025Q4

REPORT INFORMATION
  Report Type: Spontaneous
  Country: CA (occurrence: CA)
  Receive Date: 20251014
  Receipt Date: 20251014
  Transmission Date: 20260117
  Serious: Yes (Other)
  Sender: AMGEN
  Company Number: CA-AMGEN-CANSP2025200757

PATIENT
  Age: 21 Year
  Sex: Female

DRUGS (13)
  1. RITUXIMAB [Suspect]
     Active Substance: RITUXIMAB
     Indication: Heart transplant rejection
     Dosage: UNK, (TWO DOSES)
     Route: 065
  2. TACROLIMUS [Suspect]
     Active Substance: TACROLIMUS
     Indication: Immunosuppressant drug therapy
     Dosage: UNK
     Route: 065
  3. MYCOPHENOLATE MOFETIL [Concomitant]
     Active Substance: MYCOPHENOLATE MOFETIL
  4. SOLU-MEDROL [Concomitant]
     Active Substance: METHYLPREDNISOLONE SODIUM SUCCINATE
  5. PREDNISONE [Concomitant]
     Active Substance: PREDNISONE
  6. ECULIZUMAB [Concomitant]
     Active Substance: ECULIZUMAB
     Dosage: UNK, (ON DAYS 6, 8, AND 10)
  7. ECULIZUMAB [Concomitant]
     Active Substance: ECULIZUMAB
     Dosage: 900 MILLIGRAM
  8. METHYLPREDNISOLONE [Concomitant]
     Active Substance: METHYLPREDNISOLONE
     Dosage: 10 MILLIGRAM/KILOGRAM, QD
  9. METHYLPREDNISOLONE [Concomitant]
     Active Substance: METHYLPREDNISOLONE
     Dosage: 1 MILLIGRAM/KILOGRAM, (FOR 3 MONTHS)
     Route: 048
  10. THYMOGLOBULIN [Concomitant]
     Active Substance: LAPINE T-LYMPHOCYTE IMMUNE GLOBULIN
  11. TOLODODEKIN ALFA [Concomitant]
     Active Substance: TOLODODEKIN ALFA
     Dosage: 16 MILLIGRAM/KILOGRAM, QWK
  12. TOLODODEKIN ALFA [Concomitant]
     Active Substance: TOLODODEKIN ALFA
     Dosage: UNK
  13. LAPINE T-LYMPHOCYTE IMMUNE GLOBULIN [Concomitant]
     Active Substance: LAPINE T-LYMPHOCYTE IMMUNE GLOBULIN

REACTIONS (7)
  - Hypogammaglobulinaemia [Unknown]
  - Posterior reversible encephalopathy syndrome [Unknown]
  - Coronary artery stenosis [Unknown]
  - Heart transplant rejection [Unknown]
  - Donor specific antibody present [Unknown]
  - Drug ineffective for unapproved indication [Unknown]
  - Off label use [Unknown]
